FAERS Safety Report 4876131-9 (Version None)
Quarter: 2006Q1

REPORT INFORMATION
  Report Type: 
  Country: None (occurrence: None)
  Receive Date: 20060106
  Receipt Date: 20060106
  Transmission Date: 20060701
  Serious: Yes (Hospitalization)
  Sender: FDA-Public Use
  Company Number: None

PATIENT
  Sex: Female

DRUGS (1)
  1. OXYBUTYNIN 5 MG TAB MFG PLIVA [Suspect]
     Indication: URINARY INCONTINENCE
     Dosage: 5 MG PO BID
     Route: 048
     Dates: start: 20051227, end: 20060102

REACTIONS (3)
  - DYSPNOEA [None]
  - RESPIRATORY DISTRESS [None]
  - WHEEZING [None]
